FAERS Safety Report 20362027 (Version 1)
Quarter: 2022Q1

REPORT INFORMATION
  Report Type: Spontaneous
  Country: TW (occurrence: TW)
  Receive Date: 20220121
  Receipt Date: 20220121
  Transmission Date: 20220423
  Serious: Yes (Death, Hospitalization)
  Sender: FDA-Public Use
  Company Number: TW-PFIZER INC-202200030726

PATIENT
  Age: 8 Decade
  Sex: Male

DRUGS (1)
  1. IBRANCE [Suspect]
     Active Substance: PALBOCICLIB
     Indication: Breast cancer male

REACTIONS (2)
  - Pneumonia aspiration [Fatal]
  - Choking [Fatal]

NARRATIVE: CASE EVENT DATE: 20220106
